FAERS Safety Report 22632777 (Version 4)
Quarter: 2023Q4

REPORT INFORMATION
  Report Type: Spontaneous
  Country: US (occurrence: US)
  Receive Date: 20230623
  Receipt Date: 20231220
  Transmission Date: 20240109
  Serious: Yes (Death, Hospitalization, Other)
  Sender: FDA-Public Use
  Company Number: US-AMGEN-USASP2023107766

PATIENT

DRUGS (9)
  1. ROMIPLOSTIM [Suspect]
     Active Substance: ROMIPLOSTIM
     Indication: Thrombocytopenic purpura
     Dosage: 3 PG/KG/WEEKLY  (MEDIAN)
     Route: 065
  2. ROMIPLOSTIM [Suspect]
     Active Substance: ROMIPLOSTIM
     Dosage: 5 PG/KG/WEEK
     Route: 065
  3. RITUXIMAB [Suspect]
     Active Substance: RITUXIMAB
     Indication: Thrombocytopenic purpura
     Dosage: UNK
     Route: 065
  4. ELTROMBOPAG [Concomitant]
     Active Substance: ELTROMBOPAG
     Indication: Thrombocytopenic purpura
     Dosage: 50 MG DAILY (MEDIAN)
  5. ELTROMBOPAG [Concomitant]
     Active Substance: ELTROMBOPAG
     Dosage: 25 MG DAILY
  6. AVATROMBOPAG [Concomitant]
     Active Substance: AVATROMBOPAG
     Indication: Thrombocytopenic purpura
     Dosage: 20 MG DAILY  (MEDIAN)
     Route: 065
  7. AVATROMBOPAG [Concomitant]
     Active Substance: AVATROMBOPAG
     Dosage: 20 MILLIGRAM, QD
     Route: 065
  8. FOSTAMATINIB [Concomitant]
     Active Substance: FOSTAMATINIB
     Indication: Thrombocytopenic purpura
     Dosage: 150 MG TWICE DAILY (MEDIAN)
     Route: 065
  9. HUMAN IMMUNOGLOBULIN G [Concomitant]
     Active Substance: HUMAN IMMUNOGLOBULIN G
     Dosage: UNK
     Route: 065

REACTIONS (21)
  - Death [Fatal]
  - Deep vein thrombosis [Unknown]
  - Pulmonary embolism [Unknown]
  - Pancytopenia [Unknown]
  - Diarrhoea [Unknown]
  - Fatigue [Unknown]
  - Headache [Unknown]
  - Nausea [Unknown]
  - Abdominal pain [Unknown]
  - Rash [Unknown]
  - Hypertransaminasaemia [Unknown]
  - Haematuria [Unknown]
  - Myalgia [Unknown]
  - Constipation [Unknown]
  - Fluid retention [Unknown]
  - Peripheral swelling [Unknown]
  - Ageusia [Unknown]
  - Dizziness [Unknown]
  - Oedema [Unknown]
  - Vomiting [Unknown]
  - Off label use [Unknown]
